FAERS Safety Report 9969402 (Version 2)
Quarter: 2014Q2

REPORT INFORMATION
  Report Type: Spontaneous
  Country: US (occurrence: US)
  Receive Date: 20140306
  Receipt Date: 20140415
  Transmission Date: 20141212
  Serious: Yes (Hospitalization)
  Sender: FDA-Public Use
  Company Number: US-BIOGENIDEC-2014BI019417

PATIENT
  Age: 59 Year
  Sex: Female

DRUGS (2)
  1. AVONEX [Suspect]
     Indication: MULTIPLE SCLEROSIS
     Route: 030
  2. AVONEX [Suspect]
     Indication: MULTIPLE SCLEROSIS
     Route: 030
     Dates: start: 20011101, end: 20140226

REACTIONS (6)
  - Urinary tract infection bacterial [Unknown]
  - Gait disturbance [Not Recovered/Not Resolved]
  - Sciatica [Unknown]
  - Back disorder [Unknown]
  - Urinary retention [Not Recovered/Not Resolved]
  - Drug ineffective [Recovered/Resolved]
